FAERS Safety Report 10182362 (Version 4)
Quarter: 2014Q3

REPORT INFORMATION
  Report Type: Spontaneous
  Country: US (occurrence: US)
  Receive Date: 20140520
  Receipt Date: 20140707
  Transmission Date: 20150326
  Serious: Yes (Other)
  Sender: FDA-Public Use
  Company Number: US-PFIZER INC-2014134073

PATIENT
  Age: 56 Year
  Sex: Female
  Weight: 48.98 kg

DRUGS (6)
  1. DILANTIN [Suspect]
     Active Substance: PHENYTOIN
     Dosage: THREE TO FOUR PHENYTOIN CAPSULES AT NIGHT
     Route: 048
  2. DILANTIN [Suspect]
     Active Substance: PHENYTOIN
     Dosage: TWO CAPSULES IN MORNING
     Route: 048
  3. DILANTIN [Suspect]
     Active Substance: PHENYTOIN
     Indication: CONVULSION
     Dosage: 30 MG, 2X/DAY
     Route: 048
     Dates: start: 1994
  4. DILANTIN [Suspect]
     Active Substance: PHENYTOIN
     Dosage: SOMETIMES FOUR CAPSULES IN THE MORNING
     Route: 048
  5. VITAMIN B12 [Concomitant]
     Active Substance: CYANOCOBALAMIN
     Dosage: UNK
  6. DILANTIN [Suspect]
     Active Substance: PHENYTOIN
     Dosage: UNK
     Route: 048

REACTIONS (10)
  - Product colour issue [Unknown]
  - Tooth disorder [Unknown]
  - Weight decreased [Unknown]
  - Bone density decreased [Unknown]
  - Gingival disorder [Unknown]
  - Body height decreased [Unknown]
  - Abasia [Unknown]
  - Speech disorder [Unknown]
  - Anticonvulsant drug level abnormal [Unknown]
  - Drug ineffective [Unknown]
